FAERS Safety Report 12968506 (Version 1)
Quarter: 2016Q4

REPORT INFORMATION
  Report Type: Spontaneous
  Country: US (occurrence: US)
  Receive Date: 20161120
  Receipt Date: 20161120
  Transmission Date: 20170207
  Serious: No
  Sender: FDA-Public Use
  Company Number: None

PATIENT
  Age: 67 Year
  Sex: Female

DRUGS (1)
  1. HUMIRA [Suspect]
     Active Substance: ADALIMUMAB
     Indication: RHEUMATOID ARTHRITIS
     Route: 058
     Dates: start: 20161001, end: 20161111

REACTIONS (5)
  - Chest discomfort [None]
  - Weight increased [None]
  - Dyspnoea [None]
  - Contusion [None]
  - Chest pain [None]

NARRATIVE: CASE EVENT DATE: 20161110
